FAERS Safety Report 25975666 (Version 1)
Quarter: 2025Q4

REPORT INFORMATION
  Report Type: Spontaneous
  Country: US (occurrence: US)
  Receive Date: 20251029
  Receipt Date: 20251029
  Transmission Date: 20260117
  Serious: No
  Sender: SANDOZ
  Company Number: US-SANDOZ-SDZ2025US078811

PATIENT

DRUGS (2)
  1. FERUMOXYTOL [Suspect]
     Active Substance: FERUMOXYTOL
     Indication: Product used for unknown indication
     Dosage: 510MG/17ML, 1 TIME INJECTION
     Route: 042
  2. FERUMOXYTOL [Suspect]
     Active Substance: FERUMOXYTOL
     Dosage: 510MG/17ML, 1 TIME INJECTION
     Route: 042

REACTIONS (6)
  - Chest pain [Unknown]
  - Heart rate increased [Unknown]
  - Dyspnoea [Unknown]
  - Back pain [Unknown]
  - Vomiting [Unknown]
  - Nausea [Unknown]

NARRATIVE: CASE EVENT DATE: 20251020
